FAERS Safety Report 25391410 (Version 1)
Quarter: 2025Q2

REPORT INFORMATION
  Report Type: Report from Study
  Country: CA (occurrence: CA)
  Receive Date: 20250603
  Receipt Date: 20250603
  Transmission Date: 20250717
  Serious: Yes (Other)
  Sender: BIOGEN
  Company Number: CA-BIOGEN-2025BI01312265

PATIENT
  Sex: Male

DRUGS (3)
  1. QALSODY [Suspect]
     Active Substance: TOFERSEN
     Indication: Amyotrophic lateral sclerosis
     Dosage: LOADING (DAY 0, DAY 14, DAY 28)
     Route: 050
     Dates: start: 20200511
  2. QALSODY [Suspect]
     Active Substance: TOFERSEN
     Dosage: MAINTENANCE DOSE
     Route: 050
  3. RILUZOLE [Concomitant]
     Active Substance: RILUZOLE
     Indication: Product used for unknown indication
     Route: 050

REACTIONS (2)
  - Noninfectious myelitis [Unknown]
  - Amyotrophic lateral sclerosis [Unknown]

NARRATIVE: CASE EVENT DATE: 20240101
